FAERS Safety Report 10051178 (Version 1)
Quarter: 2014Q2

REPORT INFORMATION
  Report Type: Report from Study
  Country: SE (occurrence: SE)
  Receive Date: 20140401
  Receipt Date: 20140401
  Transmission Date: 20141212
  Serious: Yes (Death, Hospitalization, Other)
  Sender: FDA-Public Use
  Company Number: SE-CELGENEUS-150-50794-14033146

PATIENT
  Sex: 0

DRUGS (4)
  1. VIDAZA [Suspect]
     Indication: MYELODYSPLASTIC SYNDROME
     Dosage: 13.3929 MILLIGRAM/SQ. METER
  2. EPO [Concomitant]
     Indication: MYELODYSPLASTIC SYNDROME
     Route: 065
  3. EPO [Concomitant]
     Dosage: 8571.4286 DOSAGE FORMS
     Route: 065
  4. GRANULOCYTE COLONY-STIMULATING FACTOR NOS [Concomitant]
     Indication: MYELODYSPLASTIC SYNDROME
     Route: 065

REACTIONS (30)
  - Death [Fatal]
  - Thrombocytopenia [Unknown]
  - Neutropenia [Unknown]
  - Pancytopenia [Unknown]
  - Arrhythmia [Unknown]
  - Syncope [Unknown]
  - Infection [Unknown]
  - Cardiac valve disease [Unknown]
  - Febrile neutropenia [Unknown]
  - Anaemia [Unknown]
  - Chest pain [Unknown]
  - Constipation [Unknown]
  - Dyspnoea [Unknown]
  - Pyrexia [Unknown]
  - Serum ferritin increased [Unknown]
  - Urethral obstruction [Unknown]
  - Decreased appetite [Unknown]
  - Urticaria [Unknown]
  - Haemorrhage [Unknown]
  - Rash [Unknown]
  - Palpitations [Unknown]
  - Depression [Unknown]
  - Diarrhoea [Unknown]
  - Transaminases increased [Unknown]
  - Fatigue [Unknown]
  - Flushing [Unknown]
  - Headache [Unknown]
  - Injection site reaction [Unknown]
  - Nausea [Unknown]
  - Drug ineffective [Unknown]
